FAERS Safety Report 12921132 (Version 1)
Quarter: 2016Q4

REPORT INFORMATION
  Report Type: Spontaneous
  Country: US (occurrence: US)
  Receive Date: 20161107
  Receipt Date: 20161107
  Transmission Date: 20170207
  Serious: No
  Sender: FDA-Public Use
  Company Number: US-AMGEN-USASP2016149558

PATIENT
  Age: 64 Year
  Sex: Male

DRUGS (1)
  1. ENBREL [Suspect]
     Active Substance: ETANERCEPT
     Indication: RHEUMATOID ARTHRITIS
     Dosage: 25 MG, ONCE EVERY 9 DAYS
     Route: 065
     Dates: start: 20011102

REACTIONS (2)
  - Intentional product misuse [Unknown]
  - Dental caries [Unknown]

NARRATIVE: CASE EVENT DATE: 20011102
